FAERS Safety Report 20854873 (Version 3)
Quarter: 2022Q3

REPORT INFORMATION
  Report Type: Spontaneous
  Country: JP (occurrence: JP)
  Receive Date: 20220520
  Receipt Date: 20220729
  Transmission Date: 20221027
  Serious: Yes (Death, Life-Threatening, Hospitalization, Other)
  Sender: FDA-Public Use
  Company Number: JP-AMGEN-JPNSP2022085078

PATIENT
  Age: 86 Year
  Sex: Male

DRUGS (12)
  1. EVENITY [Suspect]
     Active Substance: ROMOSOZUMAB-AQQG
     Indication: Osteoporosis
     Dosage: 210 MILLIGRAM, QMO
     Route: 058
     Dates: start: 20211022, end: 20220422
  2. SENNOSIDES [Concomitant]
     Active Substance: SENNOSIDES
  3. FLUNITRAZEPAM [Concomitant]
     Active Substance: FLUNITRAZEPAM
  4. BELSOMRA [Concomitant]
     Active Substance: SUVOREXANT
  5. MAGNESIUM OXIDE [Concomitant]
     Active Substance: MAGNESIUM OXIDE
  6. DUTASTERIDE [Concomitant]
     Active Substance: DUTASTERIDE
  7. REBAMIPIDE [Concomitant]
     Active Substance: REBAMIPIDE
  8. SILODOSIN [Concomitant]
     Active Substance: SILODOSIN
  9. CANDESARTAN [Concomitant]
     Active Substance: CANDESARTAN
  10. AMLODIPINE [Concomitant]
     Active Substance: AMLODIPINE BESYLATE
  11. TRANEXAMIC ACID [Concomitant]
     Active Substance: TRANEXAMIC ACID
  12. CARBAZOCHROME SULFONATE DE SODIUM [Concomitant]

REACTIONS (1)
  - Duodenal ulcer haemorrhage [Fatal]

NARRATIVE: CASE EVENT DATE: 20220502
